FAERS Safety Report 10165331 (Version 2)
Quarter: 2014Q2

REPORT INFORMATION
  Report Type: Spontaneous
  Country: US (occurrence: US)
  Receive Date: 20140510
  Receipt Date: 20140510
  Transmission Date: 20141212
  Serious: No
  Sender: FDA-Public Use
  Company Number: US-BRISTOL-MYERS SQUIBB COMPANY-19805480

PATIENT
  Age: 54 Year
  Sex: Female
  Weight: 119.27 kg

DRUGS (8)
  1. BYDUREON [Suspect]
     Indication: WEIGHT DECREASED
     Dates: start: 20131029, end: 20131029
  2. BYDUREON [Suspect]
     Indication: GLUCOSE TOLERANCE IMPAIRED
     Dates: start: 20131029, end: 20131029
  3. PRILOSEC [Concomitant]
  4. SYNTHROID [Concomitant]
  5. METOPROLOL [Concomitant]
  6. AMLODIPINE [Concomitant]
  7. SINGULAIR [Concomitant]
  8. ADVAIR [Concomitant]

REACTIONS (4)
  - Vomiting [Recovering/Resolving]
  - Gastrooesophageal reflux disease [Recovering/Resolving]
  - Insomnia [Recovering/Resolving]
  - Decreased appetite [Recovering/Resolving]
